FAERS Safety Report 23574228 (Version 1)
Quarter: 2024Q1

REPORT INFORMATION
  Report Type: Spontaneous
  Country: SE (occurrence: SE)
  Receive Date: 20240228
  Receipt Date: 20240228
  Transmission Date: 20240409
  Serious: Yes (Other)
  Sender: FDA-Public Use
  Company Number: SE-UCBSA-2024009409

PATIENT
  Sex: Male

DRUGS (1)
  1. BIMZELX [Suspect]
     Active Substance: BIMEKIZUMAB-BKZX
     Indication: Psoriatic arthropathy
     Dosage: UNK

REACTIONS (10)
  - Malaise [Unknown]
  - Abdominal discomfort [Not Recovered/Not Resolved]
  - Abdominal distension [Not Recovered/Not Resolved]
  - Abdominal pain upper [Unknown]
  - Lacrimation increased [Unknown]
  - Discomfort [Unknown]
  - Retching [Unknown]
  - Diarrhoea [Unknown]
  - Dyspnoea [Unknown]
  - Pulmonary pain [Unknown]
